FAERS Safety Report 18625781 (Version 1)
Quarter: 2020Q4

REPORT INFORMATION
  Report Type: Spontaneous
  Country: US (occurrence: US)
  Receive Date: 20201216
  Receipt Date: 20201216
  Transmission Date: 20210114
  Serious: Yes (Other)
  Sender: FDA-Public Use
  Company Number: US-GILEAD-2020-0509154

PATIENT
  Age: 73 Year
  Sex: Male
  Weight: 67.7 kg

DRUGS (1)
  1. TECARTUS [Suspect]
     Active Substance: BREXUCABTAGENE AUTOLEUCEL
     Indication: MANTLE CELL LYMPHOMA
     Dosage: 1 DOSAGE FORM, ONCE
     Route: 042
     Dates: start: 20200928, end: 20200928

REACTIONS (14)
  - Somnolence [Unknown]
  - Aphasia [Recovering/Resolving]
  - Immune effector cell-associated neurotoxicity syndrome [Recovering/Resolving]
  - Cytokine release syndrome [Recovered/Resolved]
  - Pyrexia [Recovered/Resolved]
  - Fatigue [Unknown]
  - Disorientation [Recovering/Resolving]
  - Encephalopathy [Recovering/Resolving]
  - Tremor [Unknown]
  - Headache [Unknown]
  - Confusional state [Recovering/Resolving]
  - Memory impairment [Recovering/Resolving]
  - Agitation [Recovering/Resolving]
  - Dysphagia [Unknown]

NARRATIVE: CASE EVENT DATE: 20201003
